FAERS Safety Report 6119257-4 (Version None)
Quarter: 2009Q1

REPORT INFORMATION
  Report Type: 
  Country: None (occurrence: None)
  Receive Date: 20090316
  Receipt Date: 20090309
  Transmission Date: 20090719
  Serious: Yes (Other)
  Sender: FDA-Public Use
  Company Number: US-ELI_LILLY_AND_COMPANY-US200903002117

PATIENT
  Age: 83 Year
  Sex: Male

DRUGS (7)
  1. ALIMTA [Suspect]
     Indication: NON-SMALL CELL LUNG CANCER
     Dates: start: 20090304
  2. GEMZAR [Suspect]
     Indication: NON-SMALL CELL LUNG CANCER
  3. CARBOPLATIN [Concomitant]
  4. FOLIC ACID [Concomitant]
     Dates: start: 20090303
  5. VITAMIN B-12 [Concomitant]
     Dates: start: 20090303
  6. DEXAMETHASONE [Concomitant]
     Route: 042
     Dates: start: 20090303
  7. DEXAMETHASONE [Concomitant]
     Dosage: 2 TABS
     Route: 048
     Dates: start: 20090304

REACTIONS (10)
  - ABDOMINAL PAIN UPPER [None]
  - ARTHRALGIA [None]
  - CONSTIPATION [None]
  - COUGH [None]
  - DYSPNOEA [None]
  - MUSCULOSKELETAL PAIN [None]
  - RASH [None]
  - RASH PRURITIC [None]
  - SNEEZING [None]
  - URTICARIA [None]
